FAERS Safety Report 14331090 (Version 2)
Quarter: 2017Q4

REPORT INFORMATION
  Report Type: Spontaneous
  Country: US (occurrence: US)
  Receive Date: 20171228
  Receipt Date: 20171228
  Transmission Date: 20180321
  Serious: No
  Sender: FDA-Public Use
  Company Number: US-ABBVIE-17P-163-2109233-00

PATIENT
  Sex: Male

DRUGS (3)
  1. XGEVA [Concomitant]
     Active Substance: DENOSUMAB
     Route: 058
  2. LUPRON DEPOT [Suspect]
     Active Substance: LEUPROLIDE ACETATE
     Indication: BREAST CANCER MALE
     Route: 050
     Dates: start: 2012, end: 201707
  3. XGEVA [Concomitant]
     Active Substance: DENOSUMAB
     Indication: BONE DISORDER
     Route: 058
     Dates: start: 2012

REACTIONS (2)
  - Drug ineffective [Unknown]
  - Carbohydrate antigen 27.29 increased [Recovering/Resolving]

NARRATIVE: CASE EVENT DATE: 201607
